FAERS Safety Report 22934537 (Version 2)
Quarter: 2024Q1

REPORT INFORMATION
  Report Type: Spontaneous
  Country: None (occurrence: CH)
  Receive Date: 20230912
  Receipt Date: 20240105
  Transmission Date: 20240410
  Serious: Yes (Other)
  Sender: FDA-Public Use
  Company Number: CH-B.Braun Medical Inc.-2145871

PATIENT
  Age: 61 Year
  Sex: Male
  Weight: 66 kg

DRUGS (2)
  1. SODIUM CHLORIDE [Suspect]
     Active Substance: SODIUM CHLORIDE
     Route: 042
     Dates: start: 20230803, end: 20230803
  2. SOAP [Suspect]
     Active Substance: SOAP

REACTIONS (4)
  - Hypotension [None]
  - Bradycardia [None]
  - Generalised tonic-clonic seizure [None]
  - Anaphylactic reaction [None]
